FAERS Safety Report 25598371 (Version 1)
Quarter: 2025Q3

REPORT INFORMATION
  Report Type: Spontaneous
  Country: CN (occurrence: CN)
  Receive Date: 20250723
  Receipt Date: 20250723
  Transmission Date: 20251020
  Serious: Yes (Other)
  Sender: DEVA
  Company Number: CN-DEVA-2025-CN-000152

PATIENT
  Age: 73 Year
  Sex: Male

DRUGS (1)
  1. CEFTRIAXONE [Suspect]
     Active Substance: CEFTRIAXONE
     Indication: Bacterial infection
     Dates: start: 20230723

REACTIONS (1)
  - Kounis syndrome [Unknown]

NARRATIVE: CASE EVENT DATE: 20230723
